FAERS Safety Report 15424307 (Version 1)
Quarter: 2018Q3

REPORT INFORMATION
  Report Type: Spontaneous
  Country: US (occurrence: US)
  Receive Date: 20180925
  Receipt Date: 20180925
  Transmission Date: 20181010
  Serious: Yes (Other)
  Sender: FDA-Public Use
  Company Number: US-SA-2017SA265620

PATIENT
  Age: 57 Year
  Sex: Female
  Weight: 95.25 kg

DRUGS (13)
  1. TAXOTERE [Suspect]
     Active Substance: DOCETAXEL
     Indication: BREAST CANCER FEMALE
     Dosage: UNK UNK,QCY
     Route: 042
     Dates: start: 20110719, end: 20110719
  2. AMLODIPINE [AMLODIPINE BESILATE] [Concomitant]
     Active Substance: AMLODIPINE BESYLATE
     Dosage: UNK
     Route: 065
     Dates: start: 201107
  3. NEOSAR [Concomitant]
     Active Substance: CYCLOPHOSPHAMIDE
     Route: 065
  4. DOXORUBICIN [Concomitant]
     Active Substance: DOXORUBICIN
     Route: 065
  5. TAXOTERE [Suspect]
     Active Substance: DOCETAXEL
     Dosage: 157 MG/M2, Q3W
     Route: 042
     Dates: start: 20111101, end: 20111101
  6. EXEMESTANE. [Concomitant]
     Active Substance: EXEMESTANE
     Dosage: UNK
     Route: 065
     Dates: start: 2012
  7. IBUPROFEN. [Concomitant]
     Active Substance: IBUPROFEN
     Dosage: UNK
     Route: 065
     Dates: start: 201108
  8. HYDROCODONE/ACETAMINOPHEN [Concomitant]
     Active Substance: ACETAMINOPHEN\HYDROCODONE
     Route: 065
  9. FLUOXETINE [Concomitant]
     Active Substance: FLUOXETINE HYDROCHLORIDE
     Route: 065
  10. GABAPENTIN. [Concomitant]
     Active Substance: GABAPENTIN
     Dosage: UNK
     Route: 065
     Dates: start: 201108
  11. DEXILANT [Concomitant]
     Active Substance: DEXLANSOPRAZOLE
     Dosage: UNK
     Route: 065
     Dates: start: 2010
  12. KLOR?CON [Concomitant]
     Active Substance: POTASSIUM CHLORIDE
     Route: 065
  13. VITAMIN D [Concomitant]
     Active Substance: CHOLECALCIFEROL
     Route: 065

REACTIONS (1)
  - Alopecia [Not Recovered/Not Resolved]

NARRATIVE: CASE EVENT DATE: 20110722
